FAERS Safety Report 8572070-0 (Version None)
Quarter: 2012Q3

REPORT INFORMATION
  Report Type: 
  Country: None (occurrence: None)
  Receive Date: 20120806
  Receipt Date: 20120730
  Transmission Date: 20120928
  Serious: Yes (Hospitalization, Other)
  Sender: FDA-Public Use
  Company Number: PHHY2012FR033758

PATIENT
  Sex: Female
  Weight: 113 kg

DRUGS (6)
  1. INDORAMIN [Concomitant]
     Indication: MIGRAINE
     Dosage: UNK
     Route: 048
  2. LYRICA [Concomitant]
     Dosage: UNK
  3. ESCITALOPRAM [Concomitant]
     Dosage: UNK
  4. DITROPAN [Concomitant]
     Dosage: UNK
  5. NEURONTIN [Concomitant]
     Indication: PAIN
     Dosage: UNK
  6. GILENYA [Suspect]
     Indication: RELAPSING-REMITTING MULTIPLE SCLEROSIS
     Dosage: 1 DF
     Route: 048
     Dates: start: 20120116, end: 20120405

REACTIONS (7)
  - HAEMOGLOBINAEMIA [None]
  - BLOOD PRESSURE DECREASED [None]
  - C-REACTIVE PROTEIN INCREASED [None]
  - GENERALISED OEDEMA [None]
  - FACE OEDEMA [None]
  - OEDEMA PERIPHERAL [None]
  - GAIT DISTURBANCE [None]
